FAERS Safety Report 15280466 (Version 9)
Quarter: 2018Q4

REPORT INFORMATION
  Report Type: Report from Study
  Country: None (occurrence: CH)
  Receive Date: 20180815
  Receipt Date: 20181207
  Transmission Date: 20190204
  Serious: Yes (Hospitalization, Other)
  Sender: FDA-Public Use
  Company Number: CH-ABBVIE-18S-151-2434240-00

PATIENT
  Age: 79 Year
  Sex: Female

DRUGS (24)
  1. DUODOPA [Suspect]
     Active Substance: CARBIDOPA\LEVODOPA
     Dosage: 2.6ML; CD 0.9ML/H; ED 0.5ML
     Route: 050
     Dates: start: 20180727, end: 20180727
  2. DUODOPA [Suspect]
     Active Substance: CARBIDOPA\LEVODOPA
     Dosage: MD 2.3ML; CD 0.8ML/H; ED 0.5ML
     Route: 050
     Dates: start: 20180822
  3. TRITTICO [Concomitant]
     Active Substance: TRAZODONE HYDROCHLORIDE
     Indication: PRODUCT USED FOR UNKNOWN INDICATION
     Dosage: AT NIGHT
     Route: 065
  4. BALDRIAN [Concomitant]
     Active Substance: VALERIAN
     Indication: PRODUCT USED FOR UNKNOWN INDICATION
     Route: 065
  5. DUODOPA [Suspect]
     Active Substance: CARBIDOPA\LEVODOPA
     Dosage: MD 2.5ML; CD 0.8ML/H; ED 0.5ML
     Route: 050
     Dates: start: 20180730
  6. DUODOPA [Suspect]
     Active Substance: CARBIDOPA\LEVODOPA
     Dosage: MD 2.4ML; CD 0.8ML/H; ED 0.5ML
     Route: 050
     Dates: start: 20180822
  7. ZINC. [Concomitant]
     Active Substance: ZINC
     Indication: PRODUCT USED FOR UNKNOWN INDICATION
     Dosage: EVENING
     Route: 065
  8. DUODOPA [Suspect]
     Active Substance: CARBIDOPA\LEVODOPA
     Dosage: MD 2.5ML; CD 0.8ML/H; ED 0.5ML
     Route: 050
  9. DUODOPA [Suspect]
     Active Substance: CARBIDOPA\LEVODOPA
     Dosage: MD: 2.5ML; CD-DAY: 1.0ML/H; ED: 0.5ML?16H THERAPY
     Route: 050
     Dates: start: 20180906, end: 20180923
  10. DUODOPA [Suspect]
     Active Substance: CARBIDOPA\LEVODOPA
     Dosage: MD: 2.2ML; CDD: 1.0ML/H; ED: 0.5ML 16H THERAPY
     Route: 050
  11. LATANOPROST. [Concomitant]
     Active Substance: LATANOPROST
     Indication: PRODUCT USED FOR UNKNOWN INDICATION
     Dosage: EVENING
     Route: 047
  12. DUODOPA [Suspect]
     Active Substance: CARBIDOPA\LEVODOPA
     Indication: PARKINSON^S DISEASE
     Route: 050
     Dates: start: 20160824, end: 20180723
  13. DUODOPA [Suspect]
     Active Substance: CARBIDOPA\LEVODOPA
     Dosage: MD 2.7ML; CD 0.9ML/HR; ED 0.5ML
     Route: 050
     Dates: start: 20180723, end: 20180726
  14. DUODOPA [Suspect]
     Active Substance: CARBIDOPA\LEVODOPA
     Dosage: MD 2.4ML; CD 0.8ML/H; ED 0.5ML
     Route: 050
     Dates: start: 20180729, end: 20180730
  15. MOVICOL [Concomitant]
     Active Substance: POLYETHYLENE GLYCOL 3350\POTASSIUM CHLORIDE\SODIUM BICARBONATE\SODIUM CHLORIDE
     Indication: PRODUCT USED FOR UNKNOWN INDICATION
     Dosage: MORNING
     Route: 065
  16. DUODOPA [Suspect]
     Active Substance: CARBIDOPA\LEVODOPA
     Dosage: MD 2.6ML ADMINISTERED LATER IN THE MORNING; CD 0.9ML/H; ED 0.5ML
     Route: 050
     Dates: start: 20180726, end: 20180726
  17. DUODOPA [Suspect]
     Active Substance: CARBIDOPA\LEVODOPA
     Dosage: MD 2.5ML; CD 0.8ML/H; ED 0.5ML
     Route: 050
     Dates: start: 20180727, end: 20180729
  18. TIMOPTIC [Concomitant]
     Active Substance: TIMOLOL MALEATE
     Indication: PRODUCT USED FOR UNKNOWN INDICATION
     Dosage: MORNING
     Route: 047
  19. DUODOPA [Suspect]
     Active Substance: CARBIDOPA\LEVODOPA
     Dosage: MD: 2.4ML; CDD: 1.0ML/H; ED: 0.5ML?16H THERAPY
     Route: 050
     Dates: start: 20180923
  20. QUETIAPIN [Suspect]
     Active Substance: QUETIAPINE
     Indication: PRODUCT USED FOR UNKNOWN INDICATION
     Dosage: IN THE EVENING
     Route: 065
  21. DUODOPA [Suspect]
     Active Substance: CARBIDOPA\LEVODOPA
     Dosage: MD: 2.4ML; CD-DAY: 0.8ML/H; ED: 0.5ML?16H THERAPY
     Route: 050
     Dates: end: 20180904
  22. DUODOPA [Suspect]
     Active Substance: CARBIDOPA\LEVODOPA
     Dosage: MD: 2.5ML; CD-DAY: 0.9ML/H; ED: 0.5ML?16H THERAPY
     Route: 050
     Dates: start: 20180905, end: 20180905
  23. SYMFONA [Concomitant]
     Active Substance: GINKGO
     Indication: PRODUCT USED FOR UNKNOWN INDICATION
     Dosage: EVENING
  24. FRESUBIN DRINKS [Concomitant]
     Indication: PRODUCT USED FOR UNKNOWN INDICATION
     Dosage: MORNING
     Route: 065

REACTIONS (31)
  - Adjustment disorder [Unknown]
  - Product dose omission [Recovered/Resolved]
  - Device kink [Unknown]
  - Cough [Unknown]
  - Gastrooesophageal reflux disease [Recovered/Resolved]
  - Akinesia [Recovered/Resolved]
  - General physical health deterioration [Not Recovered/Not Resolved]
  - Diet refusal [Recovered/Resolved]
  - Intentional device misuse [Unknown]
  - Stenosis [Unknown]
  - Overdose [Unknown]
  - Colitis [Unknown]
  - Mobility decreased [Recovering/Resolving]
  - Fall [Unknown]
  - Weight decreased [Recovering/Resolving]
  - Akinesia [Recovering/Resolving]
  - Dystonia [Unknown]
  - Cachexia [Unknown]
  - Haematoma [Unknown]
  - Pyrexia [Recovered/Resolved]
  - Drug ineffective [Unknown]
  - Aggression [Unknown]
  - Cough [Recovered/Resolved]
  - Anaemia macrocytic [Unknown]
  - Device issue [Recovered/Resolved]
  - Duodenal ulcer haemorrhage [Recovering/Resolving]
  - Freezing phenomenon [Recovering/Resolving]
  - Bezoar [Recovering/Resolving]
  - Hypophagia [Unknown]
  - Device occlusion [Unknown]
  - Restlessness [Recovering/Resolving]

NARRATIVE: CASE EVENT DATE: 2018
